FAERS Safety Report 22626008 (Version 1)
Quarter: 2023Q2

REPORT INFORMATION
  Report Type: Spontaneous
  Country: US (occurrence: None)
  Receive Date: 20230620
  Receipt Date: 20230620
  Transmission Date: 20230721
  Serious: No
  Sender: FDA-Public Use
  Company Number: None

PATIENT
  Age: 76 Year
  Sex: Female
  Weight: 67.05 kg

DRUGS (2)
  1. HYPOCHLOROUS ACID [Suspect]
     Active Substance: HYPOCHLOROUS ACID
     Indication: Eye infection bacterial
     Dosage: FREQUENCY : TWICE A DAY;?
     Route: 061
     Dates: start: 20230530, end: 20230616
  2. ivizia eye drops [Concomitant]

REACTIONS (3)
  - Oropharyngeal pain [None]
  - Dysgeusia [None]
  - Paranasal sinus inflammation [None]

NARRATIVE: CASE EVENT DATE: 20230616
